FAERS Safety Report 6424250-8 (Version None)
Quarter: 2009Q4

REPORT INFORMATION
  Report Type: 
  Country: None (occurrence: None)
  Receive Date: 20091102
  Receipt Date: 20091021
  Transmission Date: 20100525
  Serious: Yes (Hospitalization, Other)
  Sender: FDA-Public Use
  Company Number: US-PFIZER INC-2009286219

PATIENT
  Sex: Female
  Weight: 102 kg

DRUGS (9)
  1. NEURONTIN [Suspect]
     Indication: PAIN MANAGEMENT
     Dosage: 1600 MG, 2X/DAY
     Route: 048
     Dates: start: 20070202, end: 20090718
  2. NEURONTIN [Suspect]
     Dosage: 4000 MG, QHS
     Route: 048
     Dates: start: 20070202, end: 20090718
  3. INVESTIGATIONAL DRUG [Suspect]
     Indication: GLUCOSE TOLERANCE IMPAIRED
     Dosage: UNK
     Dates: start: 20041121
  4. INVESTIGATIONAL DRUG [Suspect]
     Dosage: UNK
     Dates: end: 20090629
  5. INVESTIGATIONAL DRUG [Suspect]
     Dosage: UNK
     Dates: end: 20090730
  6. INVESTIGATIONAL DRUG [Suspect]
     Indication: CARDIOVASCULAR DISORDER
     Dosage: LEVEL 1
     Route: 048
     Dates: start: 20041121
  7. INVESTIGATIONAL DRUG [Suspect]
     Dosage: LEVEL 2/160 MG, UNK
     Route: 048
     Dates: end: 20090629
  8. INVESTIGATIONAL DRUG [Suspect]
     Dosage: LEVEL2/160 MG
     Route: 048
     Dates: end: 20090730
  9. RANOLAZINE [Concomitant]

REACTIONS (12)
  - ARTHRITIS [None]
  - BACTERIAL INFECTION [None]
  - DEHYDRATION [None]
  - DEMENTIA [None]
  - GASTROOESOPHAGEAL REFLUX DISEASE [None]
  - LUNG NEOPLASM [None]
  - MENTAL STATUS CHANGES [None]
  - MOBILITY DECREASED [None]
  - NEUROPATHY PERIPHERAL [None]
  - OSTEOARTHRITIS [None]
  - PARTIAL SEIZURES [None]
  - URINARY TRACT INFECTION [None]
